FAERS Safety Report 11122710 (Version 1)
Quarter: 2015Q2

REPORT INFORMATION
  Report Type: Spontaneous
  Country: US (occurrence: None)
  Receive Date: 20150518
  Receipt Date: 20150518
  Transmission Date: 20150821
  Serious: Yes (Other)
  Sender: FDA-Public Use
  Company Number: None

PATIENT
  Age: 38 Year
  Sex: Female
  Weight: 93.44 kg

DRUGS (4)
  1. MULTIVITAMIN [Concomitant]
     Active Substance: VITAMINS
  2. OMEGA 3 6 9 [Concomitant]
  3. SEROQUEL [Suspect]
     Active Substance: QUETIAPINE FUMARATE
     Indication: HYPOMANIA
     Dosage: 1/200 MG AT BEDTIME TAKEN BY MOUTH
     Route: 048
  4. SEROQUEL [Suspect]
     Active Substance: QUETIAPINE FUMARATE
     Indication: DEPRESSION
     Dosage: 1/200 MG AT BEDTIME TAKEN BY MOUTH
     Route: 048

REACTIONS (4)
  - Erythema [None]
  - Rash [None]
  - Oedema peripheral [None]
  - Skin exfoliation [None]

NARRATIVE: CASE EVENT DATE: 20150501
